FAERS Safety Report 17570663 (Version 1)
Quarter: 2020Q1

REPORT INFORMATION
  Report Type: Spontaneous
  Country: ES (occurrence: ES)
  Receive Date: 20200323
  Receipt Date: 20200323
  Transmission Date: 20200409
  Serious: Yes (Other)
  Sender: FDA-Public Use
  Company Number: ES-TEVA-2020-ES-1206559

PATIENT
  Age: 11 Year
  Sex: Male
  Weight: 47.65 kg

DRUGS (3)
  1. VINCRISTINA (809A) [Suspect]
     Active Substance: VINCRISTINE SULFATE
     Indication: BURKITT^S LYMPHOMA
     Dosage: 1 MG / M2 SINGLE DOSE DAY 1
     Route: 042
     Dates: start: 20200217, end: 20200217
  2. CICLOFOSFAMIDA (120A) [Suspect]
     Active Substance: CYCLOPHOSPHAMIDE
     Indication: BURKITT^S LYMPHOMA
     Dosage: SINGLE DOSE 300 MG / M2 SINGLE DOSE DAY 1
     Route: 042
     Dates: start: 20200217, end: 20200217
  3. PREDNISONA (886A) [Concomitant]
     Active Substance: PREDNISONE
     Indication: BURKITT^S LYMPHOMA
     Dosage: 60 MG/M2 DAILY; EVERY 24 HOURS PREDNISONE 60 MG / M2 / DAY IV FOR 7 DAYS
     Route: 042
     Dates: start: 20200217, end: 20200223

REACTIONS (1)
  - Hepatitis [Recovered/Resolved]

NARRATIVE: CASE EVENT DATE: 20200218
